FAERS Safety Report 22199192 (Version 2)
Quarter: 2023Q2

REPORT INFORMATION
  Report Type: Spontaneous
  Country: US (occurrence: US)
  Receive Date: 20230411
  Receipt Date: 20230512
  Transmission Date: 20230721
  Serious: Yes (Hospitalization, Other)
  Sender: FDA-Public Use
  Company Number: US-BRISTOL-MYERS SQUIBB COMPANY-2023-048406

PATIENT
  Age: 74 Year
  Sex: Female
  Weight: 65.77 kg

DRUGS (1)
  1. REVLIMID [Suspect]
     Active Substance: LENALIDOMIDE
     Indication: Plasma cell myeloma
     Dosage: 2W, 1W OFF
     Route: 048

REACTIONS (7)
  - Hip fracture [Unknown]
  - Blood creatinine increased [Unknown]
  - Atrial fibrillation [Unknown]
  - Off label use [Unknown]
  - Abdominal distension [Unknown]
  - Constipation [Unknown]
  - Fall [Unknown]
